FAERS Safety Report 8321448-9 (Version None)
Quarter: 2012Q2

REPORT INFORMATION
  Report Type: 
  Country: None (occurrence: None)
  Receive Date: 20120430
  Receipt Date: 20120430
  Transmission Date: 20120825
  Serious: Yes (Life-Threatening, Hospitalization)
  Sender: FDA-Public Use
  Company Number: None

PATIENT
  Sex: Male
  Weight: 72.56 kg

DRUGS (4)
  1. DABIGATRAN [Suspect]
     Indication: ATRIAL FIBRILLATION
     Dosage: 150 MG
     Route: 048
     Dates: start: 20120125, end: 20120425
  2. DABIGATRAN [Suspect]
     Indication: ANTICOAGULANT THERAPY
     Dosage: 150 MG
     Route: 048
     Dates: start: 20120125, end: 20120425
  3. ASPIRIN [Concomitant]
     Indication: ATRIAL FIBRILLATION
     Dosage: 81 MG
     Route: 048
     Dates: start: 20120125, end: 20120425
  4. ASPIRIN [Concomitant]
     Indication: ANTICOAGULANT THERAPY
     Dosage: 81 MG
     Route: 048
     Dates: start: 20120125, end: 20120425

REACTIONS (9)
  - NAUSEA [None]
  - SYNCOPE [None]
  - AMNESIA [None]
  - SUBDURAL HAEMATOMA [None]
  - FALL [None]
  - SPEECH DISORDER [None]
  - VOMITING [None]
  - DIPLOPIA [None]
  - DISORIENTATION [None]
